FAERS Safety Report 24845483 (Version 1)
Quarter: 2025Q1

REPORT INFORMATION
  Report Type: Spontaneous
  Country: CA (occurrence: CA)
  Receive Date: 20250115
  Receipt Date: 20250115
  Transmission Date: 20250409
  Serious: Yes (Hospitalization, Other)
  Sender: PFIZER
  Company Number: CA-PFIZER INC-202500007609

PATIENT
  Age: 70 Year
  Sex: Male
  Weight: 75 kg

DRUGS (14)
  1. CARBOPLATIN [Suspect]
     Active Substance: CARBOPLATIN
     Indication: Large cell lung cancer stage IV
  2. PACLITAXEL [Suspect]
     Active Substance: PACLITAXEL
     Indication: Large cell lung cancer stage IV
  3. EPCLUSA [Concomitant]
     Active Substance: SOFOSBUVIR\VELPATASVIR
  4. HYDROCORTISONE [Concomitant]
     Active Substance: HYDROCORTISONE
  5. HYDROXYZINE [Concomitant]
     Active Substance: HYDROXYZINE HYDROCHLORIDE
  6. LEVOTHYROXINE [Concomitant]
     Active Substance: LEVOTHYROXINE
  7. MAGNESIUM OXIDE [Concomitant]
     Active Substance: MAGNESIUM OXIDE
  8. METFORMIN [Concomitant]
     Active Substance: METFORMIN HYDROCHLORIDE
  9. ONDANSETRON [Concomitant]
     Active Substance: ONDANSETRON
  10. PANTOPRAZOLE SODIUM [Concomitant]
     Active Substance: PANTOPRAZOLE SODIUM
     Route: 048
  11. PROCHLORPERAZINE [Concomitant]
     Active Substance: PROCHLORPERAZINE
  12. THIAMINE [Concomitant]
     Active Substance: THIAMINE
  13. VENLAFAXINE HYDROCHLORIDE [Concomitant]
     Active Substance: VENLAFAXINE HYDROCHLORIDE
  14. ZINC GLUCONATE [Concomitant]
     Active Substance: ZINC GLUCONATE

REACTIONS (4)
  - Anaemia [Recovering/Resolving]
  - Febrile neutropenia [Recovering/Resolving]
  - Transfusion [Recovering/Resolving]
  - Off label use [Unknown]
